FAERS Safety Report 18368770 (Version 2)
Quarter: 2020Q4

REPORT INFORMATION
  Report Type: Spontaneous
  Country: US (occurrence: US)
  Receive Date: 20201010
  Receipt Date: 20201110
  Transmission Date: 20210114
  Serious: No
  Sender: FDA-Public Use
  Company Number: US-ELI_LILLY_AND_COMPANY-US202006012628

PATIENT

DRUGS (1)
  1. VERZENIO [Suspect]
     Active Substance: ABEMACICLIB
     Indication: PRODUCT USED FOR UNKNOWN INDICATION
     Dosage: UNK UNK, UNKNOWN
     Route: 065
     Dates: start: 202004

REACTIONS (9)
  - Abdominal pain upper [Unknown]
  - Diarrhoea [Unknown]
  - Pigmentation disorder [Unknown]
  - Muscle spasms [Unknown]
  - Vomiting [Unknown]
  - Back pain [Unknown]
  - Alopecia [Unknown]
  - Pain [Unknown]
  - Headache [Unknown]
